FAERS Safety Report 24938026 (Version 1)
Quarter: 2025Q1

REPORT INFORMATION
  Report Type: Spontaneous
  Country: US (occurrence: None)
  Receive Date: 20250206
  Receipt Date: 20250206
  Transmission Date: 20250409
  Serious: Yes (Disabling, Other)
  Sender: FDA-CTU
  Company Number: None

PATIENT
  Age: 21 Year
  Sex: Female
  Weight: 64.8 kg

DRUGS (8)
  1. CELECOXIB [Suspect]
     Active Substance: CELECOXIB
     Indication: Psoriatic arthropathy
     Dosage: FREQUENCY : TWICE A DAY;?
     Route: 048
     Dates: start: 20250204, end: 20250204
  2. VYVANSE [Concomitant]
     Active Substance: LISDEXAMFETAMINE DIMESYLATE
  3. VITAMIN E [Concomitant]
     Active Substance: .ALPHA.-TOCOPHEROL
  4. FISH OIL [Concomitant]
     Active Substance: FISH OIL
  5. APPLE CIDER VINEGAR [Concomitant]
     Active Substance: APPLE CIDER VINEGAR
  6. VITAMIN C [Concomitant]
     Active Substance: ASCORBIC ACID
  7. Zinc/calcium/magnesium with vitamin D3 [Concomitant]
  8. VITAMIN D3 [Concomitant]
     Active Substance: CHOLECALCIFEROL

REACTIONS (11)
  - Sensory disturbance [None]
  - Feeling hot [None]
  - Paraesthesia [None]
  - Heart rate increased [None]
  - Influenza like illness [None]
  - Pruritus genital [None]
  - Genital pain [None]
  - Psoriasis [None]
  - Fungal infection [None]
  - Body temperature decreased [None]
  - Hypersensitivity [None]

NARRATIVE: CASE EVENT DATE: 20250205
